FAERS Safety Report 11860468 (Version 1)
Quarter: 2015Q4

REPORT INFORMATION
  Report Type: Report from Study
  Country: IT (occurrence: IT)
  Receive Date: 20151222
  Receipt Date: 20151222
  Transmission Date: 20160305
  Serious: Yes (Life-Threatening, Hospitalization)
  Sender: FDA-Public Use
  Company Number: IT-BAYER-2015-461462

PATIENT
  Age: 75 Year
  Sex: Male
  Weight: 88 kg

DRUGS (11)
  1. ANTRA [Concomitant]
     Active Substance: OMEPRAZOLE
     Indication: GASTROINTESTINAL HAEMORRHAGE
     Dosage: DAILY DOSE 40 ML
     Route: 048
     Dates: start: 20151104
  2. NEXIUM [Concomitant]
     Active Substance: ESOMEPRAZOLE MAGNESIUM
     Indication: HEPATIC ENCEPHALOPATHY PROPHYLAXIS
     Dosage: DAILY DOSE 1200 MG
     Route: 048
  3. ISOLYTE [Concomitant]
     Indication: GASTROINTESTINAL HAEMORRHAGE
     Dosage: DAILY DOSE 1000 ML
     Route: 042
     Dates: start: 20151104
  4. PRIMOVIST [Suspect]
     Active Substance: GADOXETATE DISODIUM
     Dosage: DAILY DOSE 1 DF
     Route: 042
     Dates: start: 20150223
  5. LASIX [Concomitant]
     Active Substance: FUROSEMIDE
     Indication: ASCITES
  6. ROCEFIN [Concomitant]
     Active Substance: CEFTRIAXONE SODIUM
     Indication: GASTROINTESTINAL HAEMORRHAGE
     Dosage: DAILY DOSE 2 MG
     Route: 042
     Dates: start: 20151104
  7. CARDICOR [Concomitant]
     Active Substance: BISOPROLOL
  8. LASIX [Concomitant]
     Active Substance: FUROSEMIDE
     Indication: HYPERTENSION
     Dosage: DAILY DOSE 25 MG
     Route: 048
  9. BISOPROLOL [Concomitant]
     Active Substance: BISOPROLOL
     Indication: HYPERTENSION
     Dosage: DAILY DOSE 1.25 MG
     Route: 048
  10. SORAFENIB (RAF KINASE INHIBITOR) [Suspect]
     Active Substance: SORAFENIB
     Indication: HEPATOCELLULAR CARCINOMA
     Dosage: DAILY DOSE 400 MG
     Route: 048
     Dates: start: 20150307, end: 20151103
  11. NORMIX [Concomitant]
     Active Substance: RIFAXIMIN

REACTIONS (1)
  - Anaemia [Recovered/Resolved with Sequelae]

NARRATIVE: CASE EVENT DATE: 20151103
